FAERS Safety Report 12471491 (Version 1)
Quarter: 2016Q2

REPORT INFORMATION
  Report Type: Spontaneous
  Country: US (occurrence: None)
  Receive Date: 20160615
  Receipt Date: 20160615
  Transmission Date: 20160815
  Serious: No
  Sender: FDA-Public Use
  Company Number: None

PATIENT
  Age: 46 Year
  Sex: Female

DRUGS (1)
  1. RIBASPHERE [Suspect]
     Active Substance: RIBAVIRIN
     Indication: HEPATITIS C
     Dosage: RIBASPHERE 200MG TAB 3 TABS QAM AND 2QPM PO
     Route: 048
     Dates: start: 20160518

REACTIONS (1)
  - Terminal insomnia [None]

NARRATIVE: CASE EVENT DATE: 20160613
